FAERS Safety Report 24611349 (Version 1)
Quarter: 2024Q4

REPORT INFORMATION
  Report Type: Spontaneous
  Country: US (occurrence: US)
  Receive Date: 20241113
  Receipt Date: 20241113
  Transmission Date: 20250115
  Serious: Yes (Life-Threatening, Hospitalization)
  Sender: CHEPLAPHARM
  Company Number: None

PATIENT
  Age: 8 Year
  Sex: Male

DRUGS (2)
  1. OLANZAPINE [Suspect]
     Active Substance: OLANZAPINE
     Indication: Agitation
     Route: 048
  2. OLANZAPINE [Suspect]
     Active Substance: OLANZAPINE
     Indication: Sedation
     Route: 048

REACTIONS (7)
  - Aggression [Recovering/Resolving]
  - Dystonia [Recovering/Resolving]
  - Hypoglycaemia [Recovered/Resolved]
  - Hypertransaminasaemia [Recovering/Resolving]
  - Neuroleptic malignant syndrome [Recovering/Resolving]
  - Depressed level of consciousness [Recovering/Resolving]
  - Thrombocytosis [Unknown]
